FAERS Safety Report 7016996-8 (Version None)
Quarter: 2010Q3

REPORT INFORMATION
  Report Type: 
  Country: None (occurrence: None)
  Receive Date: 20100927
  Receipt Date: 20100920
  Transmission Date: 20110219
  Serious: No
  Sender: FDA-Public Use
  Company Number: US-PFIZER INC-2010119312

PATIENT
  Sex: Male

DRUGS (6)
  1. LYRICA [Suspect]
     Indication: NEUROPATHY PERIPHERAL
     Dosage: 75 MG, 3X/DAY
     Route: 048
     Dates: start: 20100920
  2. FENTANYL [Concomitant]
     Indication: PAIN
     Dosage: 75 UG, UNK
     Route: 062
  3. HYDROMORPHONE [Concomitant]
     Indication: PAIN
     Dosage: 4 MG, UNK
  4. SOMA [Concomitant]
     Indication: MUSCLE SPASMS
     Dosage: 350 MG, UNK
     Route: 048
  5. MAXALT [Concomitant]
     Indication: MIGRAINE
     Dosage: 10 MG, UNK
     Route: 048
  6. ZYPREXA [Concomitant]
     Indication: PSYCHOTIC DISORDER
     Dosage: 15 MG, UNK
     Route: 048

REACTIONS (1)
  - DYSPHAGIA [None]
